FAERS Safety Report 4554014-1 (Version None)
Quarter: 2005Q1

REPORT INFORMATION
  Report Type: 
  Country: None (occurrence: None)
  Receive Date: 20050118
  Receipt Date: 20040906
  Transmission Date: 20050727
  Serious: Yes (Other)
  Sender: FDA-Public Use
  Company Number: PHNU2004DE03137

PATIENT
  Sex: Male

DRUGS (1)
  1. VOLTAREN [Suspect]
     Indication: ARTHRALGIA
     Dates: start: 20040101

REACTIONS (9)
  - ABDOMINAL PAIN [None]
  - ABDOMINAL WALL DISORDER [None]
  - AMYLOIDOSIS [None]
  - C-REACTIVE PROTEIN INCREASED [None]
  - COLECTOMY [None]
  - COLITIS [None]
  - DYSPNOEA [None]
  - EXERCISE TOLERANCE DECREASED [None]
  - LARGE INTESTINAL ULCER [None]
